FAERS Safety Report 5814202-0 (Version None)
Quarter: 2008Q3

REPORT INFORMATION
  Report Type: 
  Country: None (occurrence: None)
  Receive Date: 20080717
  Receipt Date: 20080709
  Transmission Date: 20090109
  Serious: Yes (Hospitalization)
  Sender: FDA-Public Use
  Company Number: US-GENENTECH-264286

PATIENT
  Sex: Female
  Weight: 53.97 kg

DRUGS (5)
  1. AVASTIN [Suspect]
     Indication: NON-SMALL CELL LUNG CANCER
     Dosage: 810 MG, UNK
     Route: 042
     Dates: start: 20060509, end: 20060829
  2. PEMETREXED [Suspect]
     Indication: NON-SMALL CELL LUNG CANCER
     Dosage: 760 MG, UNK
     Route: 042
     Dates: start: 20060509, end: 20060829
  3. CARBOPLATIN [Suspect]
     Indication: NON-SMALL CELL LUNG CANCER
     Dosage: 510 MG, UNK
     Route: 042
     Dates: start: 20060509, end: 20060829
  4. FOLIC ACID [Concomitant]
     Indication: DRUG USE FOR UNKNOWN INDICATION
     Dosage: UNK
     Dates: start: 20060505
  5. VITAMIN B-12 [Concomitant]
     Indication: DRUG USE FOR UNKNOWN INDICATION
     Dosage: UNK
     Dates: start: 20060504, end: 20060712

REACTIONS (2)
  - DIVERTICULAR PERFORATION [None]
  - DIVERTICULITIS [None]
